FAERS Safety Report 7230867-3 (Version None)
Quarter: 2011Q1

REPORT INFORMATION
  Report Type: 
  Country: None (occurrence: None)
  Receive Date: 20110118
  Receipt Date: 20110111
  Transmission Date: 20110831
  Serious: Yes (Hospitalization)
  Sender: FDA-Public Use
  Company Number: DE-ROCHE-694778

PATIENT
  Sex: Female

DRUGS (6)
  1. VINORELBINE [Suspect]
     Dosage: DAYS 1+8; CYCLE REPEATED EVERY THREE WEEKS; DOSE PER PROTOCOL; LAST DOSE PRIOR TO SAE ON 24 MAR 2010
     Route: 042
     Dates: start: 20091201
  2. CAPECITABINE [Suspect]
     Dosage: DAYS 1-14; CYCLE REPEATED EVERY THREE WEEKS; DOSE PER PROTOCOL;LAST DOSE PRIOR TO SAE ON 31 MAR 2010
     Route: 048
     Dates: start: 20091201
  3. PANTOPRAZOLE [Concomitant]
     Dates: start: 20100105
  4. AMITRIPTYLINE HCL [Concomitant]
  5. BEVACIZUMAB [Suspect]
     Dosage: ON DAY 1; CYCLE REPEATED EVERY THREE WEEKS; DOSE PER PROTOCOL. LAST DOSE PRIOR TO SAE ON 17 MAR 2010
     Route: 042
     Dates: start: 20091201
  6. PARACODINE [Concomitant]
     Dosage: DOSE: WHEN NECESSARY

REACTIONS (1)
  - PULMONARY EMBOLISM [None]
